FAERS Safety Report 6089144-9 (Version None)
Quarter: 2009Q1

REPORT INFORMATION
  Report Type: 
  Country: None (occurrence: None)
  Receive Date: 20090220
  Receipt Date: 20090220
  Transmission Date: 20090719
  Serious: No
  Sender: FDA-Public Use
  Company Number: None

PATIENT
  Age: 5 Year
  Sex: Female
  Weight: 21.7727 kg

DRUGS (1)
  1. VIGAMOX [Suspect]
     Indication: CONJUNCTIVITIS BACTERIAL
     Dosage: 3ML 1 DROP 2 TIMES DAY OPTHALMIC, 1 DOSE
     Route: 047
     Dates: start: 20090218, end: 20090218

REACTIONS (1)
  - HYPERSENSITIVITY [None]
